FAERS Safety Report 20161755 (Version 1)
Quarter: 2021Q4

REPORT INFORMATION
  Report Type: Spontaneous
  Country: IL (occurrence: None)
  Receive Date: 20211208
  Receipt Date: 20211208
  Transmission Date: 20220303
  Serious: Yes (Hospitalization)
  Sender: FDA-Public Use
  Company Number: IL-Eisai Medical Research-EC-2021-104088

PATIENT
  Age: 4 Year
  Sex: Male

DRUGS (4)
  1. INOVELON [Suspect]
     Active Substance: RUFINAMIDE
     Indication: Lennox-Gastaut syndrome
     Dosage: FREQUENCY UNKNOWN
     Route: 048
     Dates: end: 2021
  2. INOVELON [Suspect]
     Active Substance: RUFINAMIDE
     Dosage: A DAY (FREQUENCY UNKNOWN)
     Route: 048
     Dates: start: 2021, end: 202111
  3. INOVELON [Suspect]
     Active Substance: RUFINAMIDE
     Dosage: A DAY (FREQUENCY UNKNOWN)
     Route: 048
     Dates: start: 202111
  4. VALPROIC ACID [Concomitant]
     Active Substance: VALPROIC ACID
     Indication: Product used for unknown indication
     Dosage: DOSE AND FREQUENCY UNKNOWN
     Route: 065

REACTIONS (3)
  - Depressed level of consciousness [Recovered/Resolved]
  - Feeding disorder [Unknown]
  - Saccadic eye movement [Unknown]

NARRATIVE: CASE EVENT DATE: 20211101
